FAERS Safety Report 5731444-3 (Version None)
Quarter: 2008Q2

REPORT INFORMATION
  Report Type: 
  Country: None (occurrence: None)
  Receive Date: 20080508
  Receipt Date: 20080425
  Transmission Date: 20081010
  Serious: Yes (Other)
  Sender: FDA-Public Use
  Company Number: PHEH2008US03160

PATIENT
  Sex: Female

DRUGS (1)
  1. RECLAST [Suspect]
     Dosage: UNK, ONCE/SINGLE
     Dates: start: 20080324, end: 20080301

REACTIONS (7)
  - ABASIA [None]
  - HYPOACUSIS [None]
  - MENIERE'S DISEASE [None]
  - MOVEMENT DISORDER [None]
  - NAUSEA [None]
  - TINNITUS [None]
  - VERTIGO [None]
